FAERS Safety Report 9114385 (Version 4)
Quarter: 2013Q3

REPORT INFORMATION
  Report Type: Report from Study
  Country: JP (occurrence: JP)
  Receive Date: 20130208
  Receipt Date: 20130724
  Transmission Date: 20140515
  Serious: Yes (Hospitalization, Other)
  Sender: FDA-Public Use
  Company Number: JP-ABBOTT-13P-087-1046969-00

PATIENT
  Age: 60 Year
  Sex: Male

DRUGS (37)
  1. KALETRA [Suspect]
     Indication: HIV INFECTION
     Route: 048
  2. PREDNISOLONE [Suspect]
     Indication: HEPATITIS C
     Route: 048
     Dates: start: 20111110, end: 20111206
  3. PREDNISOLONE [Suspect]
     Indication: NEPHROPATHY
     Dates: start: 20111207, end: 20111209
  4. PREDNISOLONE [Suspect]
     Dates: start: 20111210, end: 20111211
  5. PREDNISOLONE [Suspect]
     Dates: start: 20111212, end: 20111215
  6. PREDNISOLONE [Suspect]
     Dates: start: 20111216, end: 20111228
  7. PREDNISOLONE [Suspect]
     Dates: start: 20111229, end: 20120106
  8. METHYLPREDNISOLONE SODIUM SUCCINATE [Suspect]
     Indication: HEPATITIS C
     Dates: start: 20111107, end: 20111109
  9. METHYLPREDNISOLONE SODIUM SUCCINATE [Suspect]
     Indication: NEPHROPATHY
  10. ITRIZOLE [Suspect]
     Indication: INFECTION PROPHYLAXIS
     Route: 048
     Dates: start: 20111116, end: 20120113
  11. ISCOTIN [Suspect]
     Indication: INFECTION PROPHYLAXIS
     Route: 048
     Dates: start: 20111126, end: 20120113
  12. ABACAVIR SULFATE [Concomitant]
     Indication: HIV INFECTION
     Route: 048
     Dates: start: 20040602
  13. ABACAVIR SULFATE [Concomitant]
     Dates: start: 20100401, end: 20101019
  14. TENOFOVIR DISOPROXIL FUMARATE [Concomitant]
     Indication: HIV INFECTION
     Route: 048
     Dates: start: 20040602
  15. TENOFOVIR DISOPROXIL FUMARATE [Concomitant]
     Dates: start: 20100401, end: 20100921
  16. LAMIVIDINE/ABACAVIR SULFATE [Concomitant]
     Indication: HIV INFECTION
     Route: 048
     Dates: start: 20101020, end: 20111216
  17. RALTEGRAVIR POTASSIUM [Concomitant]
     Indication: HIV INFECTION
     Route: 048
     Dates: start: 20111227
  18. MONOAMMONIUM GLYCYRRHIZINATE/GLYCINE/AMINOACETIC ACID/DL-METHIONINE [Concomitant]
     Indication: LIVER DISORDER
     Route: 048
  19. MONOAMMONIUM GLYCYRRHIZINATE/GLYCINE/AMINOACETIC ACID/DL-METHIONINE [Concomitant]
  20. URSODEOXYCHOLIC ACID [Concomitant]
     Indication: LIVER DISORDER
  21. URSODEOXYCHOLIC ACID [Concomitant]
  22. AMINO ACIDS [Concomitant]
     Indication: LIVER DISORDER
     Route: 048
  23. LANSOPRAZOLE [Concomitant]
     Indication: ULCER
     Route: 048
     Dates: start: 20111107, end: 20111116
  24. LANSOPRAZOLE [Concomitant]
     Indication: PROPHYLAXIS
  25. ALENDRONATE SODIUM [Concomitant]
     Indication: OSTEOPOROSIS
     Route: 048
     Dates: start: 20111107, end: 20111219
  26. ALENDRONATE SODIUM [Concomitant]
     Indication: PROPHYLAXIS
  27. ACYCLOVIR [Concomitant]
     Indication: INFECTION PROPHYLAXIS
     Route: 048
     Dates: start: 20111107, end: 20120214
  28. FAMOTIDINE [Concomitant]
     Indication: ULCER
     Route: 048
     Dates: start: 20111117
  29. FAMOTIDINE [Concomitant]
     Indication: PROPHYLAXIS
  30. DIGESTIVE ENZYME PREPARATIONS [Concomitant]
     Indication: LIVER DISORDER
     Route: 048
     Dates: start: 20111209, end: 20111227
  31. DIGESTIVE ENZYME PREPARATIONS [Concomitant]
     Indication: DRUG THERAPY
  32. OCTOCOG ALFA [Concomitant]
     Indication: FACTOR VIII DEFICIENCY
     Dates: end: 20111214
  33. OCTOCOG ALFA [Concomitant]
     Dates: start: 20111215, end: 20120105
  34. OCTOCOG ALFA [Concomitant]
     Dates: start: 20120106
  35. NEO-MINOPHAGEN C [Concomitant]
     Indication: LIVER DISORDER
     Dates: start: 20111125
  36. NEO-MINOPHAGEN C [Concomitant]
     Indication: DRUG THERAPY
  37. EMTRICITABINE [Concomitant]
     Indication: HIV INFECTION
     Route: 048
     Dates: start: 20100922, end: 20101019

REACTIONS (13)
  - Hepatitis virus-associated nephropathy [Not Recovered/Not Resolved]
  - Drug-induced liver injury [Recovered/Resolved]
  - Muscular weakness [Unknown]
  - Hepatic function abnormal [Unknown]
  - Hepatitis C [Unknown]
  - Fluid retention [Unknown]
  - Chorioretinopathy [Recovering/Resolving]
  - Insomnia [Unknown]
  - Hypertension [Not Recovered/Not Resolved]
  - Hyperuricaemia [Not Recovered/Not Resolved]
  - Oedema peripheral [Unknown]
  - Haematuria [Unknown]
  - Nephrotic syndrome [Unknown]
